FAERS Safety Report 7681878-5 (Version None)
Quarter: 2011Q3

REPORT INFORMATION
  Report Type: 
  Country: None (occurrence: None)
  Receive Date: 20110813
  Receipt Date: 20110808
  Transmission Date: 20111222
  Serious: Yes (Other)
  Sender: FDA-Public Use
  Company Number: US-CEPHALON-US022574

PATIENT
  Sex: Female

DRUGS (2)
  1. PROVIGIL [Suspect]
     Route: 048
     Dates: start: 20070101
  2. REBIF [Suspect]
     Indication: MULTIPLE SCLEROSIS
     Dosage: 3 IN 1 WEEKS
     Route: 058
     Dates: start: 20070701

REACTIONS (1)
  - THROMBOCYTOSIS [None]
